FAERS Safety Report 8420003-X (Version None)
Quarter: 2012Q2

REPORT INFORMATION
  Report Type: 
  Country: None (occurrence: None)
  Receive Date: 20120607
  Receipt Date: 20120528
  Transmission Date: 20120825
  Serious: Yes (Other)
  Sender: FDA-Public Use
  Company Number: JP-JNJFOC-20120203328

PATIENT
  Sex: Male

DRUGS (6)
  1. USTEKINUMAB [Suspect]
     Indication: PSORIATIC ARTHROPATHY
     Route: 058
     Dates: start: 20111101
  2. CLOBETASOL PROPIONATE [Concomitant]
     Route: 061
     Dates: end: 20120323
  3. LORATADINE [Concomitant]
     Route: 048
     Dates: end: 20120323
  4. DIFLORASONE DIACETATE [Concomitant]
     Route: 061
     Dates: end: 20120323
  5. MAXACALCITOL [Concomitant]
     Route: 061
     Dates: end: 20120323
  6. USTEKINUMAB [Suspect]
     Route: 058
     Dates: start: 20111129, end: 20111130

REACTIONS (1)
  - COLON CANCER [None]
